FAERS Safety Report 7113642-X (Version None)
Quarter: 2010Q4

REPORT INFORMATION
  Report Type: 
  Country: None (occurrence: None)
  Receive Date: 20101119
  Receipt Date: 20101111
  Transmission Date: 20110411
  Serious: Yes (Hospitalization)
  Sender: FDA-Public Use
  Company Number: IT-ROCHE-740805

PATIENT
  Sex: Male

DRUGS (4)
  1. AVASTIN [Suspect]
     Route: 042
     Dates: start: 20100906, end: 20100929
  2. ELOXATIN [Concomitant]
     Route: 042
     Dates: start: 20100929, end: 20101004
  3. FLUOROURACIL [Concomitant]
     Route: 042
     Dates: start: 20100929, end: 20101004
  4. LEDERFOLIN [Concomitant]
     Dates: start: 20100929, end: 20101004

REACTIONS (2)
  - CONFUSIONAL STATE [None]
  - VERTIGO [None]
